FAERS Safety Report 8325547-7 (Version None)
Quarter: 2012Q2

REPORT INFORMATION
  Report Type: 
  Country: None (occurrence: None)
  Receive Date: 20120501
  Receipt Date: 20120423
  Transmission Date: 20120825
  Serious: Yes (Hospitalization)
  Sender: FDA-Public Use
  Company Number: US-CELGENEUS-163-20785-12042572

PATIENT
  Sex: Male
  Weight: 71.732 kg

DRUGS (23)
  1. THALOMID [Suspect]
     Dosage: 50MG-100MG-200MG
     Route: 048
     Dates: start: 20091201, end: 20100101
  2. DECADRON [Concomitant]
     Route: 065
  3. OXYCODONE HCL [Concomitant]
     Route: 065
  4. METFORMIN HCL [Concomitant]
     Route: 065
  5. GLUCOTROL [Concomitant]
     Route: 065
  6. FLEXERIL [Concomitant]
     Route: 065
  7. ALOXI [Concomitant]
     Route: 065
  8. THALOMID [Suspect]
     Dosage: 200 MILLIGRAM
     Route: 048
     Dates: start: 20051001
  9. THALOMID [Suspect]
     Dosage: 200 MILLIGRAM
     Route: 048
     Dates: start: 20081101, end: 20090101
  10. LYRICA [Concomitant]
     Route: 065
  11. ZOMETA [Concomitant]
     Route: 065
  12. CALCIUM [Concomitant]
     Route: 065
  13. VITAMIN B6 [Concomitant]
     Route: 065
  14. VITAMIN D [Concomitant]
     Route: 065
  15. THALOMID [Suspect]
     Dosage: 100 MILLIGRAM
     Route: 048
     Dates: start: 20100901, end: 20111121
  16. MULTI-VITAMINS [Concomitant]
     Route: 065
  17. LASIX [Concomitant]
     Route: 065
  18. OXYCONTIN [Concomitant]
     Route: 065
  19. VELCADE [Concomitant]
     Route: 065
  20. THALOMID [Suspect]
     Indication: MULTIPLE MYELOMA
     Dosage: 100 MILLIGRAM
     Route: 048
     Dates: start: 20050501
  21. ELAVIL [Concomitant]
     Route: 065
  22. VITAMIN B COMPLEX CAP [Concomitant]
     Route: 065
  23. ASPIRIN [Concomitant]
     Route: 065

REACTIONS (4)
  - PAIN [None]
  - OEDEMA PERIPHERAL [None]
  - ARTHROPATHY [None]
  - MULTIPLE MYELOMA [None]
